FAERS Safety Report 7249748-4 (Version None)
Quarter: 2011Q1

REPORT INFORMATION
  Report Type: 
  Country: None (occurrence: None)
  Receive Date: 20110128
  Receipt Date: 20100723
  Transmission Date: 20110831
  Serious: No
  Sender: FDA-Public Use
  Company Number: A0838146A

PATIENT
  Age: 30 Year
  Sex: Female
  Weight: 77.7 kg

DRUGS (4)
  1. WELLBUTRIN [Suspect]
     Indication: POSTPARTUM DEPRESSION
     Dosage: 300MG UNKNOWN
     Route: 048
     Dates: start: 20050101
  2. PRENATAL VITAMINS [Concomitant]
  3. PHENERGAN [Concomitant]
     Indication: NAUSEA
     Dosage: 25MG AS REQUIRED
  4. MACROBID [Concomitant]
     Indication: URINARY TRACT INFECTION
     Dosage: 100MG TWICE PER DAY
     Dates: start: 20091229

REACTIONS (3)
  - NAUSEA [None]
  - DRUG EXPOSURE DURING PREGNANCY [None]
  - URINARY TRACT INFECTION [None]
